FAERS Safety Report 21227251 (Version 1)
Quarter: 2022Q3

REPORT INFORMATION
  Report Type: Spontaneous
  Country: NL (occurrence: NL)
  Receive Date: 20220818
  Receipt Date: 20220818
  Transmission Date: 20221027
  Serious: Yes (Disabling)
  Sender: FDA-Public Use
  Company Number: NL-SUN PHARMACEUTICAL INDUSTRIES LTD-2022RR-349181

PATIENT
  Sex: Female
  Weight: 59 kg

DRUGS (10)
  1. ATORVASTATIN [Suspect]
     Active Substance: ATORVASTATIN
     Indication: Type IIa hyperlipidaemia
     Dosage: 1X PER DAY 5 MG
     Route: 065
     Dates: start: 2020
  2. ISOSORBIDE MONONITRATE [Suspect]
     Active Substance: ISOSORBIDE MONONITRATE
     Indication: Vasospasm
     Dosage: 1X PER DAY 1 CAPSULE
     Route: 065
     Dates: start: 202112
  3. IVABRADINE [Suspect]
     Active Substance: IVABRADINE
     Indication: Sinus tachycardia
     Dosage: 7.5 MILLIGRAM, BID; 2X PER DAY 1 TABLET
     Route: 065
  4. IVABRADINE [Suspect]
     Active Substance: IVABRADINE
     Dosage: 5 MILLIGRAM, BID; 2X PER DAY 1 TABLET
     Route: 065
     Dates: start: 202109
  5. ASCORBINEZUUR / Brand name not specified [Concomitant]
     Indication: Product used for unknown indication
     Dosage: 500 MG TABL
     Route: 065
  6. CALCIUM [Concomitant]
     Active Substance: CALCIUM
     Indication: Product used for unknown indication
     Dosage: 1000 MG TABL
     Route: 065
  7. CHOLECALCIFEROL [Concomitant]
     Active Substance: CHOLECALCIFEROL
     Indication: Product used for unknown indication
     Dosage: 50 MCG TABL
     Route: 065
  8. CYANOCOBALAMIN [Concomitant]
     Active Substance: CYANOCOBALAMIN
     Indication: Product used for unknown indication
     Dosage: 1000MCG TABL
     Route: 065
  9. MAGNESIUMCITRAAT / Brand name not specified [Concomitant]
     Indication: Product used for unknown indication
     Dosage: 200 MG TABL
     Route: 065
  10. ZINC [Concomitant]
     Active Substance: ZINC
     Indication: Product used for unknown indication
     Dosage: TABL
     Route: 065

REACTIONS (2)
  - Pseudohypoglycaemia [Recovering/Resolving]
  - Weight decreased [Recovering/Resolving]
